FAERS Safety Report 15202299 (Version 1)
Quarter: 2018Q3

REPORT INFORMATION
  Report Type: Report from Study
  Country: US (occurrence: US)
  Receive Date: 20180726
  Receipt Date: 20180726
  Transmission Date: 20181010
  Serious: Yes (Other)
  Sender: FDA-Public Use
  Company Number: US-PFIZER INC-2017169021

PATIENT
  Age: 43 Year
  Sex: Female

DRUGS (8)
  1. FULVESTRANT. [Concomitant]
     Active Substance: FULVESTRANT
     Dosage: 500 MG, MONTHLY
     Route: 030
     Dates: start: 20170331
  2. BUPROPION. [Concomitant]
     Active Substance: BUPROPION
     Dosage: 300 MG, DAILY
  3. IBRANCE [Suspect]
     Active Substance: PALBOCICLIB
     Indication: BREAST CANCER METASTATIC
     Dosage: 125 MG, CYCLIC (DAILY 21 DAYS ON AND 7 DAYS OFF)
     Route: 048
     Dates: start: 20170408
  4. ATENOLOL. [Concomitant]
     Active Substance: ATENOLOL
     Indication: HYPERTENSION
     Dosage: 25 MG, DAILY
     Route: 048
     Dates: start: 20000428
  5. LEUPROLIDE [Concomitant]
     Active Substance: LEUPROLIDE
     Indication: BREAST CANCER
     Dosage: 22.5 MG, EVERY 3 MONTHS (Q 3 MONTHS)
     Dates: start: 20161215
  6. FASLODEX [Suspect]
     Active Substance: FULVESTRANT
     Dosage: UNK
     Dates: start: 20170331
  7. FULVESTRANT. [Concomitant]
     Active Substance: FULVESTRANT
     Indication: BREAST CANCER
     Dosage: 500 MG, UNK [Q2 WKS X 3 THEN MONTHLY]
     Dates: start: 20170331
  8. IBRANCE [Suspect]
     Active Substance: PALBOCICLIB
     Indication: BREAST CANCER
     Dosage: 125 MG, CYCLIC (125 MG DAILY X 21/28)
     Route: 048
     Dates: start: 20170331, end: 20170921

REACTIONS (15)
  - Dysgeusia [Recovered/Resolved]
  - Platelet count decreased [Unknown]
  - Decreased appetite [Not Recovered/Not Resolved]
  - Eosinophil count decreased [Unknown]
  - White blood cell count decreased [Recovering/Resolving]
  - Abdominal pain [Unknown]
  - Product use issue [Unknown]
  - Drug dose omission [Unknown]
  - Food poisoning [Unknown]
  - Diarrhoea [Not Recovered/Not Resolved]
  - Fatigue [Not Recovered/Not Resolved]
  - Neuropathy peripheral [Unknown]
  - Oral mucosal blistering [Recovered/Resolved]
  - Blood count abnormal [Unknown]
  - Pain [Unknown]

NARRATIVE: CASE EVENT DATE: 201704
